FAERS Safety Report 11184843 (Version 1)
Quarter: 2015Q2

REPORT INFORMATION
  Report Type: Spontaneous
  Country: None (occurrence: None)
  Receive Date: 20150611
  Receipt Date: 20150611
  Transmission Date: 20150821
  Serious: No
  Sender: FDA-Public Use
  Company Number: None

PATIENT
  Age: 42 Year
  Sex: Male
  Weight: 90.7 kg

DRUGS (11)
  1. LOVENOX [Concomitant]
     Active Substance: ENOXAPARIN SODIUM
  2. VANCOMYCIN [Concomitant]
     Active Substance: VANCOMYCIN
  3. METOPROLOL TARTRATE. [Concomitant]
     Active Substance: METOPROLOL TARTRATE
  4. PEPCID [Concomitant]
     Active Substance: FAMOTIDINE
  5. TYLENOL [Concomitant]
     Active Substance: ACETAMINOPHEN
  6. LEVOPHED [Concomitant]
     Active Substance: NOREPINEPHRINE BITARTRATE
  7. ZOFRAN [Concomitant]
     Active Substance: ONDANSETRON HYDROCHLORIDE
  8. BACLOFEN. [Concomitant]
     Active Substance: BACLOFEN
  9. CEFEPIME 2 GM [Suspect]
     Active Substance: CEFEPIME HYDROCHLORIDE
     Indication: SEPSIS
     Route: 042
     Dates: start: 20150609, end: 20150609
  10. DIGOXIN. [Concomitant]
     Active Substance: DIGOXIN
  11. CEFEPIME 2 GM [Suspect]
     Active Substance: CEFEPIME HYDROCHLORIDE
     Indication: INFECTION
     Route: 042
     Dates: start: 20150609, end: 20150609

REACTIONS (1)
  - Rash [None]

NARRATIVE: CASE EVENT DATE: 20150609
